FAERS Safety Report 6335362-1 (Version None)
Quarter: 2009Q3

REPORT INFORMATION
  Report Type: 
  Country: None (occurrence: None)
  Receive Date: 20090827
  Receipt Date: 20090825
  Transmission Date: 20100115
  Serious: Yes (Hospitalization, Other)
  Sender: FDA-Public Use
  Company Number: GXKR2009DE00542

PATIENT
  Sex: Female
  Weight: 65 kg

DRUGS (4)
  1. NITRENDIPINE (NGX) (NITRENDIPINE) TABLET, 10MG [Suspect]
     Dosage: 10 MG, QD, ORAL
     Route: 048
     Dates: start: 20081028, end: 20081031
  2. AMIODARONE HYDROCHLORIDE [Suspect]
     Dosage: 200 MG, BID, ORAL
     Route: 048
     Dates: start: 20080915, end: 20081105
  3. ASPIRIN [Concomitant]
  4. INFLUENZA VACCINE (INFLUENZA VACCINE) [Concomitant]

REACTIONS (2)
  - LONG QT SYNDROME [None]
  - TORSADE DE POINTES [None]
